FAERS Safety Report 5060756-4 (Version None)
Quarter: 2006Q3

REPORT INFORMATION
  Report Type: 
  Country: None (occurrence: None)
  Receive Date: 20060721
  Receipt Date: 20060721
  Transmission Date: 20061208
  Serious: No
  Sender: FDA-Public Use
  Company Number: None

PATIENT
  Age: 35 Year
  Sex: Female
  Weight: 68.0396 kg

DRUGS (1)
  1. ZICAM   MATRIX [Suspect]
     Dosage: 1 SQUIRT UP EACH NOSTRIL   1 TIME   NASAL
     Route: 045
     Dates: start: 20060712, end: 20060712

REACTIONS (3)
  - AGEUSIA [None]
  - ANOSMIA [None]
  - NASAL DISCOMFORT [None]
